FAERS Safety Report 7799533-X (Version None)
Quarter: 2011Q4

REPORT INFORMATION
  Report Type: 
  Country: None (occurrence: None)
  Receive Date: 20111006
  Receipt Date: 20111006
  Transmission Date: 20120403
  Serious: Yes (Other)
  Sender: FDA-Public Use
  Company Number: None

PATIENT
  Age: 44 Year
  Sex: Male
  Weight: 54.431 kg

DRUGS (1)
  1. REMICADE [Suspect]
     Indication: COLITIS ULCERATIVE
     Dosage: 6 VIALS PER INFUSION
     Route: 041
     Dates: start: 20110116, end: 20110401

REACTIONS (9)
  - PYREXIA [None]
  - ORAL CANDIDIASIS [None]
  - EYE PAIN [None]
  - GENITAL RASH [None]
  - VOMITING [None]
  - MYALGIA [None]
  - ARTHRALGIA [None]
  - HEADACHE [None]
  - VISUAL IMPAIRMENT [None]
